FAERS Safety Report 7437102-1 (Version None)
Quarter: 2011Q2

REPORT INFORMATION
  Report Type: 
  Country: None (occurrence: None)
  Receive Date: 20110426
  Receipt Date: 20110419
  Transmission Date: 20111010
  Serious: Yes (Death)
  Sender: FDA-Public Use
  Company Number: PHHY2011BR32828

PATIENT
  Sex: Male

DRUGS (2)
  1. FORASEQ [Suspect]
     Dosage: 12/400 MCG
  2. FORASEQ [Suspect]
     Dosage: 12/200 MCG

REACTIONS (1)
  - LUNG DISORDER [None]
